FAERS Safety Report 17379333 (Version 1)
Quarter: 2020Q1

REPORT INFORMATION
  Report Type: Spontaneous
  Country: US (occurrence: US)
  Receive Date: 20200206
  Receipt Date: 20200206
  Transmission Date: 20200409
  Serious: No
  Sender: FDA-Public Use
  Company Number: US-ABBVIE-19K-163-2680388-00

PATIENT
  Age: 64 Year
  Sex: Male
  Weight: 88.45 kg

DRUGS (3)
  1. HUMIRA [Suspect]
     Active Substance: ADALIMUMAB
     Indication: ARTHRITIS
     Route: 058
  2. METHOTREXATE. [Concomitant]
     Active Substance: METHOTREXATE
     Indication: ARTHRITIS
  3. XELJANZ [Suspect]
     Active Substance: TOFACITINIB CITRATE
     Indication: ARTHRITIS
     Route: 048
     Dates: start: 201806, end: 201807

REACTIONS (12)
  - Dysstasia [Recovered/Resolved]
  - Drug ineffective [Unknown]
  - Chills [Recovered/Resolved]
  - Night sweats [Recovered/Resolved]
  - Pain [Unknown]
  - Nausea [Recovered/Resolved]
  - Confusional state [Unknown]
  - Asthenia [Unknown]
  - Muscular weakness [Recovered/Resolved]
  - Diarrhoea [Unknown]
  - Abdominal discomfort [Unknown]
  - Drug hypersensitivity [Unknown]

NARRATIVE: CASE EVENT DATE: 201806
